FAERS Safety Report 25868450 (Version 1)
Quarter: 2025Q4

REPORT INFORMATION
  Report Type: Spontaneous
  Country: US (occurrence: US)
  Receive Date: 20251001
  Receipt Date: 20251001
  Transmission Date: 20260118
  Serious: No
  Sender: SPECTRUM
  Company Number: US-SPECTRUM PHARMACEUTICALS, INC.-US-2025AST000204

PATIENT
  Age: 59 Year
  Sex: Female

DRUGS (1)
  1. ROLVEDON [Suspect]
     Active Substance: EFLAPEGRASTIM-XNST
     Indication: Neutropenia
     Dosage: 13.2 MG/0.6ML, AFTER CHEMOTHERAPY TREATMENT
     Route: 058
     Dates: start: 20250611

REACTIONS (1)
  - Device issue [Unknown]
